FAERS Safety Report 15950592 (Version 1)
Quarter: 2019Q1

REPORT INFORMATION
  Report Type: Spontaneous
  Country: PT (occurrence: PT)
  Receive Date: 20190211
  Receipt Date: 20190211
  Transmission Date: 20190417
  Serious: Yes (Other)
  Sender: FDA-Public Use
  Company Number: PT-PFIZER INC-2019057371

PATIENT
  Age: 41 Year
  Sex: Male
  Weight: 87 kg

DRUGS (2)
  1. SERTRALINE [Concomitant]
     Active Substance: SERTRALINE HYDROCHLORIDE
     Indication: PANIC ATTACK
     Dosage: 1 DF, 1X/DAY
     Dates: start: 201710, end: 201804
  2. XANAX [Suspect]
     Active Substance: ALPRAZOLAM
     Indication: PANIC ATTACK
     Dosage: 0.25 TO 1 MG 1XDAY
     Route: 048
     Dates: start: 20170901, end: 20190105

REACTIONS (3)
  - Drug dependence [Recovered/Resolved]
  - Persecutory delusion [Recovered/Resolved]
  - Insomnia [Unknown]

NARRATIVE: CASE EVENT DATE: 20171001
